FAERS Safety Report 16169892 (Version 1)
Quarter: 2019Q2

REPORT INFORMATION
  Report Type: Spontaneous
  Country: AU (occurrence: AU)
  Receive Date: 20190408
  Receipt Date: 20190408
  Transmission Date: 20190711
  Serious: Yes (Hospitalization, Other)
  Sender: FDA-Public Use
  Company Number: AU-ELI_LILLY_AND_COMPANY-AU201904002162

PATIENT
  Age: 21 Year
  Sex: Female
  Weight: 55 kg

DRUGS (2)
  1. CLOPINE [Suspect]
     Active Substance: CLOZAPINE
     Indication: PRODUCT USED FOR UNKNOWN INDICATION
     Dosage: UNK, UNKNOWN
     Route: 065
     Dates: start: 2015
  2. OLANZAPINE. [Suspect]
     Active Substance: OLANZAPINE
     Indication: PSYCHOTIC SYMPTOM
     Dosage: 30 MG, QD (5 MG MANE AND MIDI AND 20 MG NOCTE)
     Route: 065
     Dates: start: 2015

REACTIONS (10)
  - Weight increased [Unknown]
  - Aortic dilatation [Unknown]
  - White blood cell count abnormal [Unknown]
  - Tricuspid valve incompetence [Unknown]
  - Off label use [Unknown]
  - Aortic valve incompetence [Unknown]
  - Salivary hypersecretion [Unknown]
  - Left ventricular dysfunction [Unknown]
  - Mitral valve incompetence [Unknown]
  - Sedation [Unknown]

NARRATIVE: CASE EVENT DATE: 20171130
